FAERS Safety Report 8074296-1 (Version None)
Quarter: 2011Q4

REPORT INFORMATION
  Report Type: 
  Country: None (occurrence: None)
  Receive Date: 20111221
  Receipt Date: 20110912
  Transmission Date: 20120403
  Serious: Yes (Hospitalization)
  Sender: FDA-Public Use
  Company Number: PHHY2011US29592

PATIENT
  Age: 29 Year
  Sex: Female
  Weight: 55 kg

DRUGS (12)
  1. OXYCONTIN [Concomitant]
  2. FLEXERIL [Concomitant]
  3. AMITRIPTYLINE HCL [Concomitant]
  4. DILAUDID [Concomitant]
  5. KEPPRA [Concomitant]
  6. TOPAMAX [Concomitant]
  7. CARDIZEM LA (DILTIAZIEM) [Concomitant]
  8. FOLIC ACID [Concomitant]
  9. ASPIRIN [Concomitant]
  10. EXJADE [Suspect]
     Indication: SICKLE CELL ANAEMIA
     Dosage: 500 MG, BID, ORAL
     Route: 048
     Dates: start: 20110121
  11. ZOFRAN [Concomitant]
  12. BENADRYL (AMMONIUM CHLORIDE, DIPHENHYDRAMINE HYDROCHLORIDE, MENTHOL, S [Concomitant]

REACTIONS (3)
  - SICKLE CELL ANAEMIA WITH CRISIS [None]
  - PAIN IN EXTREMITY [None]
  - PAIN [None]
